FAERS Safety Report 8982067 (Version 1)
Quarter: 2012Q4

REPORT INFORMATION
  Report Type: 
  Country: US (occurrence: US)
  Receive Date: 20121222
  Receipt Date: 20121222
  Transmission Date: 20130627
  Serious: No
  Sender: FDA-Public Use
  Company Number: US-009507513-1212USA008050

PATIENT
  Age: 46 Year
  Sex: Male

DRUGS (2)
  1. PEGINTRON [Suspect]
     Indication: HEPATITIS C
     Dosage: UNK
     Dates: start: 20121217
  2. RIBAVIRIN [Suspect]
     Indication: HEPATITIS C
     Dosage: UNK
     Dates: start: 20121217

REACTIONS (5)
  - Hyperhidrosis [Unknown]
  - Pyrexia [Unknown]
  - Anxiety [Unknown]
  - Chills [Unknown]
  - Myalgia [Unknown]
